FAERS Safety Report 19124680 (Version 3)
Quarter: 2021Q2

REPORT INFORMATION
  Report Type: Report from Study
  Country: US (occurrence: US)
  Receive Date: 20210413
  Receipt Date: 20210527
  Transmission Date: 20210717
  Serious: No
  Sender: FDA-Public Use
  Company Number: US-KYOWAKIRIN-2021BKK005580

PATIENT

DRUGS (4)
  1. CRYSVITA [Suspect]
     Active Substance: BUROSUMAB-TWZA
     Indication: HEREDITARY HYPOPHOSPHATAEMIC RICKETS
     Dosage: 30 MG, 1X/4 WEEKS
     Route: 058
     Dates: start: 20180906
  2. CRYSVITA [Suspect]
     Active Substance: BUROSUMAB-TWZA
     Dosage: 30 MG EVERY 28 DAYS
     Route: 058
     Dates: start: 2021
  3. CRYSVITA [Suspect]
     Active Substance: BUROSUMAB-TWZA
     Indication: HEREDITARY HYPOPHOSPHATAEMIC RICKETS
     Dosage: 20 MG, EVERY 28 DAYS
     Route: 058
     Dates: start: 20180906
  4. CRYSVITA [Suspect]
     Active Substance: BUROSUMAB-TWZA
     Dosage: 20 MG, EVERY 28 DAYS
     Route: 058
     Dates: start: 2021

REACTIONS (2)
  - COVID-19 [Unknown]
  - Inappropriate schedule of product administration [Unknown]

NARRATIVE: CASE EVENT DATE: 20210329
